FAERS Safety Report 11840628 (Version 1)
Quarter: 2015Q4

REPORT INFORMATION
  Report Type: Spontaneous
  Country: DE (occurrence: DE)
  Receive Date: 20151216
  Receipt Date: 20151216
  Transmission Date: 20160305
  Serious: Yes (Other)
  Sender: FDA-Public Use
  Company Number: DE-009507513-1512DEU007960

PATIENT
  Sex: Female

DRUGS (1)
  1. NUVARING [Suspect]
     Active Substance: ETHINYL ESTRADIOL\ETONOGESTREL
     Indication: CONTRACEPTION
     Dosage: UNK
     Route: 067
     Dates: start: 20151207

REACTIONS (4)
  - Dizziness [Unknown]
  - Fatigue [Unknown]
  - Cardiovascular disorder [Unknown]
  - Nausea [Unknown]

NARRATIVE: CASE EVENT DATE: 20151208
